FAERS Safety Report 15768890 (Version 2)
Quarter: 2019Q1

REPORT INFORMATION
  Report Type: Report from Study
  Country: None (occurrence: US)
  Receive Date: 20181228
  Receipt Date: 20190314
  Transmission Date: 20190417
  Serious: Yes (Other)
  Sender: FDA-Public Use
  Company Number: US-ABBVIE-18K-163-2576440-00

PATIENT
  Age: 38 Year
  Sex: Female
  Weight: 58.11 kg

DRUGS (1)
  1. HUMIRA [Suspect]
     Active Substance: ADALIMUMAB
     Indication: PSORIASIS
     Route: 058
     Dates: start: 201804, end: 20181023

REACTIONS (6)
  - Abdominal hernia [Recovering/Resolving]
  - Abdominal pain [Recovering/Resolving]
  - Muscle disorder [Recovering/Resolving]
  - Procedural pain [Recovering/Resolving]
  - Psoriasis [Unknown]
  - Umbilical hernia [Recovering/Resolving]

NARRATIVE: CASE EVENT DATE: 201804
